FAERS Safety Report 18117255 (Version 1)
Quarter: 2020Q3

REPORT INFORMATION
  Report Type: Spontaneous
  Country: DE (occurrence: DE)
  Receive Date: 20200805
  Receipt Date: 20200805
  Transmission Date: 20201103
  Serious: Yes (Hospitalization)
  Sender: FDA-Public Use
  Company Number: DE-AUROBINDO-AUR-APL-2020-037605

PATIENT
  Age: 16 Year
  Sex: Female
  Weight: 114 kg

DRUGS (2)
  1. IBUPROFEN 400MG [Suspect]
     Active Substance: IBUPROFEN
     Indication: PRODUCT USED FOR UNKNOWN INDICATION
     Dosage: 10 DOSAGE FORM, ONCE A DAY
     Route: 048
     Dates: start: 20190422
  2. RISPERIDONA [Concomitant]
     Active Substance: RISPERIDONE
     Indication: PERSONALITY DISORDER
     Dosage: UNK
     Route: 048

REACTIONS (3)
  - General physical health deterioration [Unknown]
  - Intentional overdose [Unknown]
  - Medication error [Unknown]

NARRATIVE: CASE EVENT DATE: 20190422
